FAERS Safety Report 7602199-2 (Version None)
Quarter: 2011Q3

REPORT INFORMATION
  Report Type: 
  Country: None (occurrence: None)
  Receive Date: 20110711
  Receipt Date: 20110701
  Transmission Date: 20111222
  Serious: Yes (Life-Threatening, Hospitalization)
  Sender: FDA-Public Use
  Company Number: FR-GENZYME-CLOF-1001579

PATIENT
  Sex: Male
  Weight: 104 kg

DRUGS (9)
  1. PIPERACILLIN AND TAZOBACTAM [Concomitant]
     Dosage: 4 G, QD
     Route: 065
     Dates: start: 20110321, end: 20110329
  2. LEVOFLOXACIN [Concomitant]
     Indication: PRODUCT USED FOR UNKNOWN INDICATION
     Dosage: 500 MG, QD
     Route: 048
     Dates: start: 20110317
  3. FILGRASTIM [Suspect]
     Indication: ACUTE MYELOID LEUKAEMIA
     Dosage: 480 MG, QD
     Route: 042
     Dates: start: 20110125, end: 20110203
  4. DAUNORUBICIN HCL [Suspect]
     Dosage: 70 MG, QD ON DAYS 8-10
     Route: 042
     Dates: start: 20110125, end: 20110203
  5. EVOLTRA [Suspect]
     Indication: ACUTE MYELOID LEUKAEMIA
     Dosage: 60 MG, QDX5; DAYS 2-6
     Route: 042
     Dates: start: 20110313, end: 20110317
  6. DAUNORUBICIN HCL [Suspect]
     Indication: ACUTE MYELOID LEUKAEMIA
     Dosage: 120 MG, ON DAYS 1-3
     Route: 042
     Dates: start: 20110125, end: 20110203
  7. CYTARABINE [Suspect]
     Dosage: 2000 MG, QD ON DAYS 8-10
     Route: 042
     Dates: start: 20110125, end: 20110316
  8. CYTARABINE [Suspect]
     Indication: ACUTE MYELOID LEUKAEMIA
     Dosage: 1000 MG, QD ON DAYS 1-3
     Route: 042
     Dates: start: 20110125, end: 20110316
  9. PIPERACILLIN AND TAZOBACTAM [Concomitant]
     Indication: PRODUCT USED FOR UNKNOWN INDICATION
     Dosage: 4 G, UNK
     Route: 065
     Dates: start: 20110321, end: 20110329

REACTIONS (2)
  - HAEMORRHOIDS [None]
  - PERIRECTAL ABSCESS [None]
